FAERS Safety Report 19777255 (Version 2)
Quarter: 2021Q4

REPORT INFORMATION
  Report Type: Spontaneous
  Country: KR (occurrence: KR)
  Receive Date: 20210901
  Receipt Date: 20211019
  Transmission Date: 20220304
  Serious: Yes (Hospitalization, Other)
  Sender: FDA-Public Use
  Company Number: KR-BAXTER-2021BAX026843

PATIENT
  Age: 73 Year
  Sex: Female

DRUGS (3)
  1. CYCLOPHOSPHAMIDE [Suspect]
     Active Substance: CYCLOPHOSPHAMIDE
     Indication: Anti-neutrophil cytoplasmic antibody positive vasculitis
     Dosage: 250 MG TOTAL FOR 3 DAYS
     Route: 065
  2. PREDNISOLONE [Suspect]
     Active Substance: PREDNISOLONE
     Indication: Anti-neutrophil cytoplasmic antibody positive vasculitis
     Dosage: 30MG PER DAY ABOUT 1 MONTH
     Route: 065
  3. PREDNISOLONE [Suspect]
     Active Substance: PREDNISOLONE
     Dosage: 25MG PER DAY FOR 3 DAYS
     Route: 065

REACTIONS (5)
  - Reversible cerebral vasoconstriction syndrome [Unknown]
  - Muscular weakness [Recovered/Resolved]
  - Apathy [Recovered/Resolved]
  - Cerebral infarction [Unknown]
  - Subarachnoid haemorrhage [Unknown]
